FAERS Safety Report 12497455 (Version 1)
Quarter: 2016Q2

REPORT INFORMATION
  Report Type: Report from Study
  Country: GB (occurrence: GB)
  Receive Date: 20160624
  Receipt Date: 20160624
  Transmission Date: 20160815
  Serious: Yes (Other)
  Sender: FDA-Public Use
  Company Number: GB-JNJFOC-20160618878

PATIENT
  Age: 46 Year
  Sex: Female

DRUGS (1)
  1. SIMPONI [Suspect]
     Active Substance: GOLIMUMAB
     Indication: PRODUCT USED FOR UNKNOWN INDICATION
     Route: 058

REACTIONS (6)
  - Cardiac disorder [Unknown]
  - Sensory disturbance [Unknown]
  - Cystoscopy [Unknown]
  - Hypertension [Unknown]
  - Contusion [Unknown]
  - Palpitations [Unknown]

NARRATIVE: CASE EVENT DATE: 20160616
